FAERS Safety Report 5163861-7 (Version None)
Quarter: 2006Q4

REPORT INFORMATION
  Report Type: 
  Country: None (occurrence: None)
  Receive Date: 20061124
  Receipt Date: 20061115
  Transmission Date: 20070319
  Serious: Yes (Hospitalization, Other)
  Sender: FDA-Public Use
  Company Number: 2006113841

PATIENT
  Sex: Male
  Weight: 63.5036 kg

DRUGS (5)
  1. LYRICA [Suspect]
     Indication: NEURALGIA
     Dosage: 150 MG (75 MG, 2 IN 1 D)
     Dates: start: 20060821, end: 20060823
  2. LYRICA [Suspect]
     Indication: TRAUMATIC ARTHRITIS
     Dosage: 150 MG (75 MG, 2 IN 1 D)
     Dates: start: 20060821, end: 20060823
  3. DILANTIN [Suspect]
     Indication: CONVULSION
  4. AMITRIPTYLINE HCL [Suspect]
     Dosage: 10 MG (10 MG, 4 IN 1 D)
     Dates: start: 20060822, end: 20060822
  5. LITHIUM CARBONATE [Concomitant]

REACTIONS (15)
  - ANKLE FRACTURE [None]
  - CONFUSIONAL STATE [None]
  - CYST [None]
  - DYSKINESIA [None]
  - EYE IRRITATION [None]
  - EYE SWELLING [None]
  - FALL [None]
  - FEELING HOT [None]
  - LACRIMATION INCREASED [None]
  - LETHARGY [None]
  - OCULAR HYPERAEMIA [None]
  - RESPIRATORY DISTRESS [None]
  - SOMNOLENCE [None]
  - THROAT TIGHTNESS [None]
  - TRAUMATIC ARTHRITIS [None]
